FAERS Safety Report 17202324 (Version 3)
Quarter: 2020Q4

REPORT INFORMATION
  Report Type: Spontaneous
  Country: US (occurrence: US)
  Receive Date: 20191226
  Receipt Date: 20201028
  Transmission Date: 20210113
  Serious: No
  Sender: FDA-Public Use
  Company Number: US-PFIZER INC-2019551253

PATIENT
  Age: 46 Year
  Sex: Female
  Weight: 65 kg

DRUGS (1)
  1. PREGABALIN. [Suspect]
     Active Substance: PREGABALIN
     Indication: MULTIPLE SCLEROSIS
     Dosage: UNK

REACTIONS (6)
  - Drug ineffective for unapproved indication [Unknown]
  - Pain in extremity [Unknown]
  - Hyperaesthesia [Unknown]
  - Hypersensitivity [Not Recovered/Not Resolved]
  - Off label use [Unknown]
  - Musculoskeletal disorder [Unknown]
